FAERS Safety Report 5663118-1 (Version None)
Quarter: 2008Q1

REPORT INFORMATION
  Report Type: 
  Country: None (occurrence: None)
  Receive Date: 20080313
  Receipt Date: 20080304
  Transmission Date: 20080703
  Serious: Yes (Other)
  Sender: FDA-Public Use
  Company Number: B0506453A

PATIENT
  Age: 74 Year
  Sex: Female
  Weight: 68 kg

DRUGS (1)
  1. AMOXICILLIN + CLAVULANATE POTASSIUM [Suspect]
     Indication: ESCHERICHIA URINARY TRACT INFECTION
     Dosage: 1TAB THREE TIMES PER DAY
     Route: 048
     Dates: start: 20080116

REACTIONS (7)
  - CHROMATURIA [None]
  - FAECES PALE [None]
  - HEPATIC ENZYME INCREASED [None]
  - JAUNDICE CHOLESTATIC [None]
  - MALAISE [None]
  - NAUSEA [None]
  - PRURITUS [None]
